FAERS Safety Report 25399325 (Version 2)
Quarter: 2025Q3

REPORT INFORMATION
  Report Type: Spontaneous
  Country: EG (occurrence: EG)
  Receive Date: 20250605
  Receipt Date: 20250708
  Transmission Date: 20251021
  Serious: Yes (Hospitalization, Other)
  Sender: NOVO NORDISK
  Company Number: EG-NOVOPROD-1443355

PATIENT
  Sex: Male
  Weight: 40 kg

DRUGS (6)
  1. TRESIBA [Suspect]
     Active Substance: INSULIN DEGLUDEC
     Indication: Product used for unknown indication
     Route: 058
     Dates: start: 20231221
  2. TRESIBA [Suspect]
     Active Substance: INSULIN DEGLUDEC
     Route: 058
  3. TRESIBA [Suspect]
     Active Substance: INSULIN DEGLUDEC
     Route: 058
  4. NOVORAPID [Suspect]
     Active Substance: INSULIN ASPART
     Indication: Product used for unknown indication
     Dosage: 45 IU, QD (10 IU MORNING, 15 IU NOON, 20 IU NIGHT)
     Route: 058
     Dates: start: 20231221
  5. JUVIT [Concomitant]
     Indication: Mineral supplementation
     Route: 048
     Dates: start: 20231221
  6. CORTISONE [Concomitant]
     Active Substance: CORTISONE

REACTIONS (4)
  - Hypoglycaemic unconsciousness [Recovered/Resolved]
  - Dizziness [Unknown]
  - Pain in extremity [Unknown]
  - Hypothyroidism [Recovered/Resolved]

NARRATIVE: CASE EVENT DATE: 20240101
